FAERS Safety Report 21473650 (Version 1)
Quarter: 2022Q4

REPORT INFORMATION
  Report Type: Spontaneous
  Country: IN (occurrence: IN)
  Receive Date: 20221018
  Receipt Date: 20221018
  Transmission Date: 20230112
  Serious: Yes (Death, Other)
  Sender: FDA-Public Use
  Company Number: IN-PFIZER INC-2020026648

PATIENT
  Age: 60 Year
  Sex: Male

DRUGS (1)
  1. SUTENT [Suspect]
     Active Substance: SUNITINIB MALATE
     Indication: Gastrointestinal stromal tumour
     Dosage: 50 MG/ONCE A DAY, CYCLIC, 2 WEEKS ON AND 1 WEEK OFF
     Route: 048
     Dates: start: 20170918

REACTIONS (3)
  - Death [Fatal]
  - Weight decreased [Unknown]
  - Ear pain [Unknown]

NARRATIVE: CASE EVENT DATE: 20220611
